FAERS Safety Report 18651328 (Version 1)
Quarter: 2020Q4

REPORT INFORMATION
  Report Type: Spontaneous
  Country: US (occurrence: US)
  Receive Date: 20201222
  Receipt Date: 20201222
  Transmission Date: 20210114
  Serious: Yes (Other)
  Sender: FDA-Public Use
  Company Number: US-BAYER-2020-279829

PATIENT
  Weight: 1.43 kg

DRUGS (1)
  1. ASPIRIN (CARDIO) [Suspect]
     Active Substance: ASPIRIN

REACTIONS (3)
  - Foetal exposure during pregnancy [None]
  - Low birth weight baby [None]
  - Premature baby [None]
